FAERS Safety Report 14338735 (Version 2)
Quarter: 2018Q1

REPORT INFORMATION
  Report Type: Report from Study
  Country: JP (occurrence: JP)
  Receive Date: 20171229
  Receipt Date: 20180103
  Transmission Date: 20180509
  Serious: No
  Sender: FDA-Public Use
  Company Number: JP-009507513-1712JPN002951J

PATIENT
  Age: 72 Year
  Sex: Male
  Weight: 47 kg

DRUGS (5)
  1. VANIHEP CAPSULES 150MG [Suspect]
     Active Substance: VANIPREVIR
     Indication: CHRONIC HEPATITIS C
     Dosage: 600 MG, UNK
     Route: 048
     Dates: start: 20160406, end: 20161012
  2. PEGINTRON [Suspect]
     Active Substance: PEGINTERFERON ALFA-2B
     Indication: CHRONIC HEPATITIS C
     Dosage: 80 MICROGRAM, QW
     Route: 058
     Dates: start: 20160406, end: 20161005
  3. REBETOL [Suspect]
     Active Substance: RIBAVIRIN
     Indication: CHRONIC HEPATITIS C
     Dosage: 600 MG, UNK
     Route: 048
     Dates: start: 20160406, end: 20161012
  4. FERON [Concomitant]
     Active Substance: INTERFERON BETA
     Indication: CHRONIC HEPATITIS C
     Dosage: 6 MILLION UNITS/DAY
     Route: 051
     Dates: start: 20151119, end: 20160405
  5. SUMIFERON [Concomitant]
     Active Substance: INTERFERON ALFA-N1
     Indication: CHRONIC HEPATITIS C
     Dosage: 6 MILLION UNITS/DAY
     Route: 051
     Dates: start: 20151119, end: 20160405

REACTIONS (1)
  - Anaemia [Recovered/Resolved]

NARRATIVE: CASE EVENT DATE: 20160406
